FAERS Safety Report 7068874-6 (Version None)
Quarter: 2010Q4

REPORT INFORMATION
  Report Type: 
  Country: None (occurrence: None)
  Receive Date: 20101020
  Receipt Date: 20100924
  Transmission Date: 20110411
  Serious: Yes (Other)
  Sender: FDA-Public Use
  Company Number: LEO-2010-00927

PATIENT
  Sex: Female

DRUGS (1)
  1. INNOHEP [Suspect]
     Indication: KNEE ARTHROPLASTY
     Dosage: 4500 IU (4500 IU, 1 IN 1 D), SUBCUTANEOUS
     Route: 058
     Dates: start: 20100101

REACTIONS (1)
  - DEEP VEIN THROMBOSIS [None]
